FAERS Safety Report 6567329-2 (Version None)
Quarter: 2010Q1

REPORT INFORMATION
  Report Type: 
  Country: None (occurrence: None)
  Receive Date: 20100202
  Receipt Date: 20100121
  Transmission Date: 20100710
  Serious: Yes (Hospitalization)
  Sender: FDA-Public Use
  Company Number: PHHY2009IE57816

PATIENT
  Sex: Male

DRUGS (8)
  1. CLOZARIL [Suspect]
     Indication: SCHIZOPHRENIA
     Dosage: UNK
     Dates: start: 20090714, end: 20091217
  2. CLOZARIL [Suspect]
     Dosage: 450 MG/DAY
  3. AMISULPRIDE [Concomitant]
     Dosage: 150 MG, UNK
     Route: 048
  4. VALPROATE SODIUM [Concomitant]
     Dosage: 1200 MG/DAY
     Route: 048
  5. LAMOTRIGINE [Concomitant]
     Dosage: 200 MG, UNK
     Route: 048
  6. KWELLS [Concomitant]
     Dosage: UNK
     Route: 048
  7. MARIJUANA [Concomitant]
  8. ALCOHOL [Concomitant]

REACTIONS (4)
  - AGGRESSION [None]
  - DRUG ABUSE [None]
  - PSYCHOTIC DISORDER [None]
  - TREATMENT NONCOMPLIANCE [None]
